FAERS Safety Report 5611966-6 (Version None)
Quarter: 2008Q1

REPORT INFORMATION
  Report Type: 
  Country: None (occurrence: None)
  Receive Date: 20080111
  Receipt Date: 20070409
  Transmission Date: 20080703
  Serious: Yes (Hospitalization, Other)
  Sender: FDA-Public Use
  Company Number: HQWYE105509AUG04

PATIENT
  Age: 58 Year
  Sex: Female
  Weight: 71.28 kg

DRUGS (2)
  1. PREMPRO [Suspect]
     Indication: HORMONE REPLACEMENT THERAPY
     Dates: start: 19960101, end: 20020101
  2. PREMARIN [Suspect]

REACTIONS (1)
  - BREAST CANCER [None]
